FAERS Safety Report 5689429-1 (Version None)
Quarter: 2008Q1

REPORT INFORMATION
  Report Type: 
  Country: None (occurrence: None)
  Receive Date: 20080331
  Receipt Date: 20080325
  Transmission Date: 20080703
  Serious: Yes (Other)
  Sender: FDA-Public Use
  Company Number: JP-PFIZER INC-2008019822

PATIENT
  Age: 41 Year
  Sex: Male

DRUGS (3)
  1. VIBRAMICINA [Suspect]
     Indication: SKIN EROSION
     Route: 048
     Dates: start: 20080122, end: 20080101
  2. ATARAX [Suspect]
     Route: 048
  3. ALLELOCK [Suspect]

REACTIONS (1)
  - DEAFNESS [None]
